FAERS Safety Report 12756180 (Version 1)
Quarter: 2016Q3

REPORT INFORMATION
  Report Type: Spontaneous
  Country: US (occurrence: US)
  Receive Date: 20160916
  Receipt Date: 20160916
  Transmission Date: 20161109
  Serious: No
  Sender: FDA-Public Use
  Company Number: US-GLAXOSMITHKLINE-US2016135022

PATIENT
  Sex: Female

DRUGS (1)
  1. ALLI [Suspect]
     Active Substance: ORLISTAT
     Indication: WEIGHT LOSS DIET
     Dosage: UNK

REACTIONS (6)
  - Product quality issue [Unknown]
  - Treatment noncompliance [Unknown]
  - Ill-defined disorder [Recovered/Resolved]
  - Drug ineffective [Unknown]
  - Steatorrhoea [Recovered/Resolved]
  - Diarrhoea [Recovered/Resolved]
